FAERS Safety Report 22317429 (Version 1)
Quarter: 2023Q2

REPORT INFORMATION
  Report Type: Spontaneous
  Country: US (occurrence: US)
  Receive Date: 20230515
  Receipt Date: 20230515
  Transmission Date: 20230722
  Serious: No
  Sender: FDA-Public Use
  Company Number: US-ELI_LILLY_AND_COMPANY-US202305007088

PATIENT
  Sex: Female

DRUGS (1)
  1. TALTZ [Suspect]
     Active Substance: IXEKIZUMAB
     Indication: Psoriatic arthropathy
     Dosage: 80 MG, OTHER (ONCE EVERY 4 WEEKS)
     Route: 058
     Dates: start: 20220913

REACTIONS (3)
  - Injection site pruritus [Unknown]
  - Psoriatic arthropathy [Unknown]
  - Drug ineffective [Unknown]
